FAERS Safety Report 9858710 (Version 2)
Quarter: 2014Q1

REPORT INFORMATION
  Report Type: Report from Study
  Country: JP (occurrence: JP)
  Receive Date: 20140131
  Receipt Date: 20140131
  Transmission Date: 20141002
  Serious: Yes (Other)
  Sender: FDA-Public Use
  Company Number: JP-PFIZER INC-2013327097

PATIENT
  Age: 61 Year
  Sex: Male
  Weight: 55 kg

DRUGS (7)
  1. XALKORI [Suspect]
     Indication: NON-SMALL CELL LUNG CANCER
     Dosage: 250 MG, 2X/DAY
     Route: 048
     Dates: start: 20130723, end: 20130829
  2. TAKEPRON [Suspect]
     Dosage: 15 MG, 1X/DAY
     Route: 048
     Dates: end: 20130913
  3. NAIXAN [Concomitant]
     Dosage: 200 MG, 3X/DAY
     Route: 048
     Dates: end: 20130930
  4. MAGMITT [Concomitant]
     Dosage: 500 MG, 3X/DAY
     Route: 048
  5. ALLELOCK [Concomitant]
     Dosage: 5 MG, 2X/DAY
     Route: 048
  6. PROMAC D [Concomitant]
     Dosage: 75 MG, 2X/DAY
     Route: 048
     Dates: start: 20130807
  7. NEW LECICARBON [Concomitant]
     Dosage: 5.2 G, AS NEEDED

REACTIONS (1)
  - Oesophageal candidiasis [Recovered/Resolved]
